FAERS Safety Report 6233722-0 (Version None)
Quarter: 2009Q2

REPORT INFORMATION
  Report Type: 
  Country: None (occurrence: None)
  Receive Date: 20090617
  Receipt Date: 20090602
  Transmission Date: 20091009
  Serious: Yes (Hospitalization)
  Sender: FDA-Public Use
  Company Number: DE-GENENTECH-284871

PATIENT
  Sex: Female

DRUGS (5)
  1. BEVACIZUMAB [Suspect]
     Indication: COLON CANCER
     Dosage: 260 MG, UNK
     Route: 042
     Dates: start: 20081101
  2. CAMPTOSAR [Concomitant]
     Indication: COLON CANCER
     Dosage: UNK
     Dates: start: 20081101
  3. FLUOROURACIL [Concomitant]
     Indication: COLON CANCER
     Dosage: UNK
     Dates: start: 20081101, end: 20090520
  4. FOLINIC ACID [Concomitant]
     Indication: COLON CANCER
     Dosage: UNK
     Dates: start: 20081101, end: 20090520
  5. ARIMIDEX [Concomitant]
     Indication: BREAST CANCER
     Dosage: UNK
     Dates: start: 20081101

REACTIONS (2)
  - GUILLAIN-BARRE SYNDROME [None]
  - QUADRIPLEGIA [None]
